FAERS Safety Report 23555925 (Version 1)
Quarter: 2024Q1

REPORT INFORMATION
  Report Type: Spontaneous
  Country: AU (occurrence: AU)
  Receive Date: 20240222
  Receipt Date: 20240222
  Transmission Date: 20240409
  Serious: Yes (Other)
  Sender: FDA-Public Use
  Company Number: AU-JNJFOC-20240235479

PATIENT
  Age: 20 Year
  Sex: Male

DRUGS (1)
  1. INVEGA [Suspect]
     Active Substance: PALIPERIDONE
     Indication: Insomnia
     Route: 048
     Dates: start: 20231216

REACTIONS (3)
  - Anticholinergic syndrome [Unknown]
  - Dry mouth [Unknown]
  - Off label use [Unknown]

NARRATIVE: CASE EVENT DATE: 20231217
